FAERS Safety Report 4931898-6 (Version None)
Quarter: 2006Q1

REPORT INFORMATION
  Report Type: 
  Country: None (occurrence: None)
  Receive Date: 20060303
  Receipt Date: 20060224
  Transmission Date: 20060701
  Serious: Yes (Death, Hospitalization, Other)
  Sender: FDA-Public Use
  Company Number: US-MERCK-0602USA05765

PATIENT
  Age: 61 Year
  Sex: Male
  Weight: 70 kg

DRUGS (15)
  1. VIOXX [Suspect]
     Indication: ARTHRITIS
     Route: 048
     Dates: start: 20000126, end: 20020101
  2. VIOXX [Suspect]
     Route: 048
     Dates: start: 20000126, end: 20020401
  3. ACETAMINOPHEN [Concomitant]
     Route: 065
  4. AMITRIPTYLINE HYDROCHLORIDE [Concomitant]
     Route: 065
  5. PREVACID [Concomitant]
     Route: 065
  6. CHLORPHENIRAMINE MALEATE [Concomitant]
     Route: 065
  7. SYNTHROID [Concomitant]
     Route: 065
  8. PHENERGAN SYRUP [Concomitant]
     Route: 065
  9. PRILOSEC [Concomitant]
     Route: 065
  10. FOSAMAX [Concomitant]
     Route: 065
  11. ALLEGRA [Concomitant]
     Route: 065
  12. PROZAC [Concomitant]
     Route: 065
  13. PROPOXYPHENE HYDROCHLORIDE [Concomitant]
     Route: 065
  14. DIPHENHYDRAMINE CITRATE [Concomitant]
     Route: 065
  15. ATENOLOL [Concomitant]
     Route: 065

REACTIONS (8)
  - ABDOMINAL PAIN UPPER [None]
  - ANXIETY [None]
  - ATRIAL FIBRILLATION [None]
  - BRONCHITIS [None]
  - CEREBROVASCULAR ACCIDENT [None]
  - DEATH [None]
  - HYPERTENSION [None]
  - TRANSIENT ISCHAEMIC ATTACK [None]
